FAERS Safety Report 15620130 (Version 2)
Quarter: 2018Q4

REPORT INFORMATION
  Report Type: Spontaneous
  Country: US (occurrence: US)
  Receive Date: 20181115
  Receipt Date: 20181203
  Transmission Date: 20190205
  Serious: Yes (Other)
  Sender: FDA-Public Use
  Company Number: US-AMGEN-USASP2018159971

PATIENT
  Sex: Female

DRUGS (5)
  1. ENBREL [Suspect]
     Active Substance: ETANERCEPT
     Indication: RHEUMATOID ARTHRITIS
     Dosage: 50 MG, 2 TIMES/WK
     Route: 065
     Dates: start: 2004
  2. ENBREL [Suspect]
     Active Substance: ETANERCEPT
     Dosage: 50 MG, QWK
     Route: 065
  3. PREDNISONE. [Concomitant]
     Active Substance: PREDNISONE
     Dosage: UNK
  4. METHOTREXATE. [Concomitant]
     Active Substance: METHOTREXATE
     Dosage: 20 MG, UNK
  5. CRESTOR [Concomitant]
     Active Substance: ROSUVASTATIN CALCIUM
     Dosage: UNK

REACTIONS (14)
  - Diverticulitis [Not Recovered/Not Resolved]
  - Off label use [Unknown]
  - Discomfort [Unknown]
  - Haemorrhoids [Unknown]
  - Back pain [Unknown]
  - Hysterectomy [Unknown]
  - Rheumatoid arthritis [Unknown]
  - Urinary tract infection [Recovered/Resolved]
  - Injection site bruising [Unknown]
  - Polyp [Unknown]
  - Bladder operation [Recovered/Resolved]
  - Anorectal operation [Unknown]
  - Gastrooesophageal reflux disease [Recovering/Resolving]
  - Malaise [Unknown]

NARRATIVE: CASE EVENT DATE: 2004
